FAERS Safety Report 7867216-3 (Version None)
Quarter: 2011Q4

REPORT INFORMATION
  Report Type: 
  Country: None (occurrence: None)
  Receive Date: 20111028
  Receipt Date: 20111021
  Transmission Date: 20120403
  Serious: Yes (Hospitalization)
  Sender: FDA-Public Use
  Company Number: NL-GLAXOSMITHKLINE-B0747393C

PATIENT
  Sex: Male
  Weight: 79.7 kg

DRUGS (8)
  1. PAZOPANIB [Suspect]
     Indication: NEOPLASM
     Dosage: 200MG PER DAY
     Route: 048
     Dates: start: 20110823, end: 20111014
  2. METOCLOPRAMIDE [Concomitant]
     Dosage: 10MG THREE TIMES PER DAY
     Route: 048
     Dates: start: 20110906
  3. SODIUM CHLORIDE 0.9% [Concomitant]
     Route: 042
     Dates: start: 20110906, end: 20110906
  4. FUROSEMIDE [Concomitant]
     Route: 042
     Dates: start: 20110920, end: 20110920
  5. ATIVAN [Concomitant]
     Route: 060
     Dates: start: 20110829, end: 20110902
  6. LOPERAMIDE HCL [Concomitant]
     Dates: start: 20110906, end: 20110906
  7. IFOSFAMIDE [Suspect]
     Indication: NEOPLASM
     Dosage: 3GM2 CYCLIC
     Route: 042
     Dates: start: 20110830
  8. POTASSIUM CHLORIDE [Concomitant]
     Route: 042
     Dates: start: 20110907, end: 20110908

REACTIONS (1)
  - CONFUSIONAL STATE [None]
